FAERS Safety Report 18840231 (Version 2)
Quarter: 2021Q2

REPORT INFORMATION
  Report Type: Spontaneous
  Country: US (occurrence: US)
  Receive Date: 20210204
  Receipt Date: 20210415
  Transmission Date: 20210717
  Serious: No
  Sender: FDA-Public Use
  Company Number: US-ELI_LILLY_AND_COMPANY-US202101011871

PATIENT
  Age: 51 Year
  Sex: Female

DRUGS (9)
  1. HUMIRA [Suspect]
     Active Substance: ADALIMUMAB
     Indication: PSORIATIC ARTHROPATHY
  2. TRULICITY [Suspect]
     Active Substance: DULAGLUTIDE
     Indication: DIABETES MELLITUS
     Dosage: UNK UNK, UNKNOWN
     Route: 065
  3. CYMBALTA [Suspect]
     Active Substance: DULOXETINE HYDROCHLORIDE
     Indication: PRODUCT USED FOR UNKNOWN INDICATION
     Dosage: UNK UNK, UNKNOWN
     Route: 065
     Dates: start: 2019
  4. MOBIC [Concomitant]
     Active Substance: MELOXICAM
     Indication: PAIN
  5. METHOTREXATE. [Concomitant]
     Active Substance: METHOTREXATE
     Indication: PRODUCT USED FOR UNKNOWN INDICATION
     Dosage: UNK
  6. LANTUS [Concomitant]
     Active Substance: INSULIN GLARGINE
     Indication: DIABETES MELLITUS
  7. MOBIC [Concomitant]
     Active Substance: MELOXICAM
     Indication: ANTIINFLAMMATORY THERAPY
  8. HUMIRA [Suspect]
     Active Substance: ADALIMUMAB
     Indication: PSORIASIS
     Dosage: UNK UNK, UNKNOWN
     Route: 058
  9. FOLIC ACID. [Concomitant]
     Active Substance: FOLIC ACID
     Indication: PRODUCT USED FOR UNKNOWN INDICATION

REACTIONS (25)
  - Joint lock [Unknown]
  - Psoriasis [Recovering/Resolving]
  - Tooth abscess [Unknown]
  - Pain [Recovered/Resolved]
  - Arthralgia [Not Recovered/Not Resolved]
  - Therapeutic response shortened [Unknown]
  - Muscular weakness [Unknown]
  - Mobility decreased [Not Recovered/Not Resolved]
  - Depression [Not Recovered/Not Resolved]
  - Contusion [Recovering/Resolving]
  - Anxiety [Recovering/Resolving]
  - Pain [Not Recovered/Not Resolved]
  - Somnolence [Not Recovered/Not Resolved]
  - Pain in extremity [Not Recovered/Not Resolved]
  - Joint stiffness [Not Recovered/Not Resolved]
  - Onychalgia [Unknown]
  - Balance disorder [Unknown]
  - Dizziness [Recovering/Resolving]
  - Fall [Recovering/Resolving]
  - Gait disturbance [Recovered/Resolved]
  - Joint swelling [Not Recovered/Not Resolved]
  - Depression [Recovered/Resolved]
  - Tooth fracture [Not Recovered/Not Resolved]
  - Tooth infection [Unknown]
  - Musculoskeletal discomfort [Unknown]

NARRATIVE: CASE EVENT DATE: 2019
